FAERS Safety Report 6879853-3 (Version None)
Quarter: 2010Q3

REPORT INFORMATION
  Report Type: 
  Country: None (occurrence: None)
  Receive Date: 20100728
  Receipt Date: 20100716
  Transmission Date: 20110219
  Serious: Yes (Other)
  Sender: FDA-Public Use
  Company Number: US-RB-013038-10

PATIENT
  Age: 13 Year
  Sex: Male

DRUGS (2)
  1. MUCINEX DM [Suspect]
     Dosage: PARENT THINKS THAT THEIR SON IS TAKING A BOX AT A TIME.
     Route: 048
  2. MUCINEX DM [Suspect]
     Dosage: PARENT THINKS THAT THEIR SON IS TAKING A BOX AT A TIME.
     Route: 048

REACTIONS (2)
  - DRUG ABUSE [None]
  - NO ADVERSE EVENT [None]
